FAERS Safety Report 16791156 (Version 1)
Quarter: 2019Q3

REPORT INFORMATION
  Report Type: Spontaneous
  Country: CA (occurrence: CA)
  Receive Date: 20190910
  Receipt Date: 20190910
  Transmission Date: 20191005
  Serious: Yes (Other)
  Sender: FDA-Public Use
  Company Number: CA-PFIZER INC-2015153544

PATIENT
  Age: 49 Year
  Sex: Female

DRUGS (7)
  1. COSENTYX [Suspect]
     Active Substance: SECUKINUMAB
     Dosage: UNK
     Route: 065
  2. ENBREL [Suspect]
     Active Substance: ETANERCEPT
     Indication: RHEUMATOID ARTHRITIS
     Dosage: 25 MILLIGRAM, 2 TIMES/WK
     Route: 058
     Dates: start: 200606, end: 2012
  3. SULFASALAZINE. [Suspect]
     Active Substance: SULFASALAZINE
     Dosage: 1 G, 2X/DAY
     Route: 048
     Dates: start: 20031118, end: 200407
  4. SECUKINUMAB 1L17 [Suspect]
     Active Substance: SECUKINUMAB
     Dosage: UNK
     Route: 065
     Dates: start: 2012, end: 2014
  5. SIRUKUMAB 1L6 [Suspect]
     Active Substance: SIRUKUMAB
     Dosage: UNK
     Route: 065
     Dates: start: 201409, end: 201504
  6. METHOTREXATE SODIUM. [Suspect]
     Active Substance: METHOTREXATE SODIUM
     Dosage: 15-20 MG, WEEKLY
     Route: 048
     Dates: start: 2004, end: 201412
  7. PLAQUENIL [Concomitant]
     Active Substance: HYDROXYCHLOROQUINE SULFATE
     Dosage: UNK

REACTIONS (7)
  - Loss of personal independence in daily activities [Unknown]
  - Eye discharge [Unknown]
  - Pain [Unknown]
  - Drug ineffective [Unknown]
  - Transaminases increased [Unknown]
  - Eye haemorrhage [Unknown]
  - Joint swelling [Unknown]
